FAERS Safety Report 9852002 (Version 2)
Quarter: 2014Q1

REPORT INFORMATION
  Report Type: Spontaneous
  Country: US (occurrence: US)
  Receive Date: 20140129
  Receipt Date: 20140129
  Transmission Date: 20141002
  Serious: Yes (Other)
  Sender: FDA-Public Use
  Company Number: US-GE HEALTHCARE MEDICAL DIAGNOSTICS-OSCN-PR-0806S-0344

PATIENT
  Sex: Male

DRUGS (7)
  1. GADOLINIUM (UNSPECIFIED) [Suspect]
     Indication: PITUITARY TUMOUR BENIGN
     Route: 042
     Dates: start: 19920807, end: 19920807
  2. GADOLINIUM (UNSPECIFIED) [Suspect]
     Indication: BLOOD PROLACTIN INCREASED
     Route: 042
     Dates: start: 19940609, end: 19940609
  3. GADOLINIUM (UNSPECIFIED) [Suspect]
     Dates: start: 2006, end: 2006
  4. MAGNEVIST [Suspect]
     Indication: RETINAL VASCULAR OCCLUSION
     Dates: start: 20021030, end: 20021030
  5. MAGNEVIST [Suspect]
     Indication: DIPLOPIA
  6. EPOGEN [Concomitant]
  7. PREDNISONE [Concomitant]

REACTIONS (1)
  - Nephrogenic systemic fibrosis [Not Recovered/Not Resolved]
